FAERS Safety Report 5788033-4 (Version None)
Quarter: 2008Q2

REPORT INFORMATION
  Report Type: 
  Country: None (occurrence: None)
  Receive Date: 20080625
  Receipt Date: 20080616
  Transmission Date: 20081010
  Serious: Yes (Other)
  Sender: FDA-Public Use
  Company Number: US-ELI_LILLY_AND_COMPANY-US200806003387

PATIENT
  Age: 65 Year
  Sex: Female

DRUGS (1)
  1. PROZAC [Suspect]
     Indication: DEPRESSION
     Dosage: 20 MG, UNK

REACTIONS (4)
  - AFFECTIVE DISORDER [None]
  - FEELING ABNORMAL [None]
  - GASTRIC BYPASS [None]
  - VITAMIN B12 DEFICIENCY [None]
